FAERS Safety Report 17594446 (Version 2)
Quarter: 2020Q1

REPORT INFORMATION
  Report Type: Report from Study
  Country: CL (occurrence: CL)
  Receive Date: 20200327
  Receipt Date: 20200331
  Transmission Date: 20200409
  Serious: Yes (Death, Life-Threatening, Hospitalization)
  Sender: FDA-Public Use
  Company Number: CL-EISAI MEDICAL RESEARCH-EC-2020-072405

PATIENT
  Age: 61 Year
  Sex: Male
  Weight: 79.4 kg

DRUGS (11)
  1. PEMETREXED. [Suspect]
     Active Substance: PEMETREXED
     Dosage: 500 MILLIGRAM/SQ. METER
     Route: 041
     Dates: start: 20200221, end: 20200221
  2. PREGABALIN. [Concomitant]
     Active Substance: PREGABALIN
     Dates: start: 201802
  3. CARBAMAZEPINE. [Concomitant]
     Active Substance: CARBAMAZEPINE
     Dates: start: 201905
  4. ACETAMINOPHEN. [Concomitant]
     Active Substance: ACETAMINOPHEN
     Dates: start: 20191031
  5. LENVATINIB [Suspect]
     Active Substance: LENVATINIB
     Indication: NON-SMALL CELL LUNG CANCER METASTATIC
     Route: 048
     Dates: start: 20200110
  6. PEMBROLIZUMAB. [Suspect]
     Active Substance: PEMBROLIZUMAB
     Dates: start: 20200221, end: 20200221
  7. CARBOPLATIN. [Suspect]
     Active Substance: CARBOPLATIN
     Indication: NON-SMALL CELL LUNG CANCER METASTATIC
     Dosage: AREA UNDER THE CURVE (AUC) 5 MG/ML/MIN
     Route: 041
     Dates: start: 20200110, end: 20200131
  8. PEMETREXED. [Suspect]
     Active Substance: PEMETREXED
     Indication: NON-SMALL CELL LUNG CANCER METASTATIC
     Route: 041
     Dates: start: 20200110, end: 20200110
  9. PEMBROLIZUMAB. [Suspect]
     Active Substance: PEMBROLIZUMAB
     Indication: NON-SMALL CELL LUNG CANCER METASTATIC
     Dates: start: 20200110, end: 20200131
  10. CARBOPLATIN. [Suspect]
     Active Substance: CARBOPLATIN
     Dosage: AREA UNDER THE CURVE (AUC) 5 MG/ML/MIN
     Route: 041
     Dates: start: 20200221, end: 20200221
  11. BISOPROLOL [Concomitant]
     Active Substance: BISOPROLOL
     Dates: start: 201912

REACTIONS (2)
  - Pneumonia [Fatal]
  - Delirium [Unknown]

NARRATIVE: CASE EVENT DATE: 20200314
